FAERS Safety Report 23292446 (Version 1)
Quarter: 2023Q4

REPORT INFORMATION
  Report Type: Spontaneous
  Country: US (occurrence: US)
  Receive Date: 20231213
  Receipt Date: 20231213
  Transmission Date: 20240109
  Serious: Yes (Other)
  Sender: FDA-Public Use
  Company Number: US-MLMSERVICE-20231122-4686001-1

PATIENT
  Age: 60 Year
  Sex: Male

DRUGS (2)
  1. COBICISTAT\ELVITEGRAVIR\EMTRICITABINE\TENOFOVIR [Interacting]
     Active Substance: COBICISTAT\ELVITEGRAVIR\EMTRICITABINE\TENOFOVIR
     Indication: HIV infection
     Dosage: UNK
     Route: 065
  2. FLUTICASONE PROPIONATE AND SALMETEROL [Interacting]
     Active Substance: FLUTICASONE PROPIONATE\SALMETEROL XINAFOATE
     Indication: Asthma
     Dosage: CHRONIC USE
     Route: 050

REACTIONS (4)
  - Osteopenia [Unknown]
  - Secondary adrenocortical insufficiency [Recovering/Resolving]
  - Pseudo Cushing^s syndrome [Recovering/Resolving]
  - Drug interaction [Recovered/Resolved]
